FAERS Safety Report 7599749-1 (Version None)
Quarter: 2011Q2

REPORT INFORMATION
  Report Type: 
  Country: None (occurrence: None)
  Receive Date: 20110620
  Receipt Date: 20110325
  Transmission Date: 20111010
  Serious: Yes (Hospitalization)
  Sender: FDA-Public Use
  Company Number: UTC-005937

PATIENT
  Sex: Female
  Weight: 36.3 kg

DRUGS (4)
  1. ADCIRCA [Concomitant]
  2. TYVASO [Suspect]
     Indication: COR PULMONALE CHRONIC
     Dosage: (18 MCG), INHALATION : (6 MCG), INHALATION
     Route: 055
     Dates: start: 20110323
  3. TYVASO [Suspect]
     Indication: COR PULMONALE CHRONIC
     Dosage: (18 MCG), INHALATION : (6 MCG), INHALATION
     Route: 055
     Dates: end: 20110301
  4. REVATIO [Concomitant]

REACTIONS (1)
  - HEADACHE [None]
